FAERS Safety Report 16294872 (Version 1)
Quarter: 2019Q2

REPORT INFORMATION
  Report Type: Spontaneous
  Country: US (occurrence: US)
  Receive Date: 20190509
  Receipt Date: 20190509
  Transmission Date: 20190711
  Serious: No
  Sender: FDA-Public Use
  Company Number: US-ROCHE-2236267

PATIENT
  Sex: Female

DRUGS (19)
  1. ESBRIET [Suspect]
     Active Substance: PIRFENIDONE
     Indication: IDIOPATHIC PULMONARY FIBROSIS
     Dosage: 3CAP BY MOUTH 3X DAY WITH FOOD; ONG: UNKNOWN
     Route: 048
     Dates: start: 20170714
  2. ELIQUIS [Concomitant]
     Active Substance: APIXABAN
  3. PROAIR HFA [Concomitant]
     Active Substance: ALBUTEROL SULFATE
  4. SENNA LAXATIVE [Concomitant]
     Active Substance: SENNOSIDES
  5. AMOXICILLIN. [Concomitant]
     Active Substance: AMOXICILLIN
  6. CEFUROXIME AXETIL. [Concomitant]
     Active Substance: CEFUROXIME AXETIL
  7. CIPROFLOXACIN HCL [Concomitant]
     Active Substance: CIPROFLOXACIN HYDROCHLORIDE
  8. MORPHINE SULFATE. [Concomitant]
     Active Substance: MORPHINE SULFATE
  9. POTASSIUM CHLORIDE ERT [Concomitant]
  10. CEFDINIR. [Concomitant]
     Active Substance: CEFDINIR
  11. DOXYCYCLINE MONOHYDRATE [Concomitant]
     Active Substance: DOXYCYCLINE
  12. LEVOTHYROXINE SODIUM. [Concomitant]
     Active Substance: LEVOTHYROXINE SODIUM
  13. PREDNISONE. [Concomitant]
     Active Substance: PREDNISONE
  14. WARFARIN SODIUM. [Concomitant]
     Active Substance: WARFARIN SODIUM
  15. BACTRIM [Concomitant]
     Active Substance: SULFAMETHOXAZOLE\TRIMETHOPRIM
  16. DOCUSATE SODIUM. [Concomitant]
     Active Substance: DOCUSATE SODIUM
  17. POLYETHYLENE GLYCOL 3350. [Concomitant]
     Active Substance: POLYETHYLENE GLYCOL 3350
  18. DILTIAZEM CD [Concomitant]
     Active Substance: DILTIAZEM
  19. LEVOFLOXACIN. [Concomitant]
     Active Substance: LEVOFLOXACIN

REACTIONS (2)
  - No adverse event [Unknown]
  - Drug ineffective [Unknown]
